FAERS Safety Report 15979579 (Version 1)
Quarter: 2019Q1

REPORT INFORMATION
  Report Type: Spontaneous
  Country: US (occurrence: US)
  Receive Date: 20190219
  Receipt Date: 20190219
  Transmission Date: 20190418
  Serious: No
  Sender: FDA-Public Use
  Company Number: US-PFIZER INC-2019073592

PATIENT
  Age: 59 Year
  Sex: Male
  Weight: 115.65 kg

DRUGS (4)
  1. NUTROPIN [Suspect]
     Active Substance: SOMATROPIN
     Dosage: 7 ML, 1X/DAY (EVERY NIGHT)
     Dates: start: 2009
  2. LEVOTHYROXINE SODIUM. [Suspect]
     Active Substance: LEVOTHYROXINE SODIUM
     Indication: THYROID DISORDER
     Dosage: 150 UG, 1X/DAY
     Route: 048
     Dates: start: 2009
  3. DEXAMETHASONE. [Suspect]
     Active Substance: DEXAMETHASONE
     Indication: CORTISOL DEFICIENCY
     Dosage: 0.5 MG, 1X/DAY (EVERY NIGHT)
     Route: 048
  4. TESTOSTERONE CIPIONATE [Suspect]
     Active Substance: TESTOSTERONE
     Dosage: 1 ML, (EVERY 2 WEEKS)
     Dates: start: 2009

REACTIONS (1)
  - Neuralgia [Unknown]
